FAERS Safety Report 7418339-4 (Version None)
Quarter: 2011Q2

REPORT INFORMATION
  Report Type: 
  Country: None (occurrence: None)
  Receive Date: 20110415
  Receipt Date: 20110408
  Transmission Date: 20111010
  Serious: Yes (Death)
  Sender: FDA-Public Use
  Company Number: A0921940A

PATIENT
  Age: 66 Year
  Sex: Female

DRUGS (14)
  1. FLOLAN [Suspect]
     Dosage: 4ML UNKNOWN
     Route: 055
  2. DOBUTAMINE HCL [Concomitant]
     Route: 065
  3. HEPARIN SODIUM [Concomitant]
     Route: 065
  4. MIDAZOLAM [Concomitant]
     Route: 065
  5. OMEPRAZOLE [Concomitant]
     Route: 065
  6. ALUMINUM HYDROXIDE [Concomitant]
     Route: 065
  7. FENTANYL [Concomitant]
     Route: 065
  8. FLUCONAZOLE [Concomitant]
     Route: 065
  9. THYROXINE [Concomitant]
     Route: 065
  10. METHYLPREDNISOLONE SODIUM SUCCINATE [Concomitant]
     Route: 065
  11. PIPERACILLIN AND TAZOBACTAM [Concomitant]
     Route: 065
  12. FUROSEMIDE [Concomitant]
     Route: 065
  13. VITAMIN K TAB [Concomitant]
     Route: 065
  14. INSULIN [Concomitant]
     Route: 065

REACTIONS (5)
  - HYPOTENSION [None]
  - PNEUMOTHORAX [None]
  - SEPSIS [None]
  - OFF LABEL USE [None]
  - MULTI-ORGAN FAILURE [None]
